FAERS Safety Report 24915816 (Version 2)
Quarter: 2025Q3

REPORT INFORMATION
  Report Type: Report from Study
  Country: CO (occurrence: CO)
  Receive Date: 20250203
  Receipt Date: 20250802
  Transmission Date: 20251020
  Serious: Yes (Hospitalization, Other)
  Sender: ALEXION PHARMACEUTICALS
  Company Number: CO-AstraZeneca-CH-00797857A

PATIENT
  Sex: Male

DRUGS (1)
  1. LYNPARZA [Suspect]
     Active Substance: OLAPARIB
     Indication: Prostate cancer
     Dosage: 150 MILLIGRAM, Q12H
     Dates: start: 20240917

REACTIONS (2)
  - Necrosis [Recovering/Resolving]
  - Haemoglobin decreased [Recovering/Resolving]
